FAERS Safety Report 8603187-X (Version None)
Quarter: 2012Q3

REPORT INFORMATION
  Report Type: 
  Country: None (occurrence: None)
  Receive Date: 20120817
  Receipt Date: 20120815
  Transmission Date: 20120928
  Serious: Yes (Death, Hospitalization)
  Sender: FDA-Public Use
  Company Number: HU-ROCHE-1072080

PATIENT
  Sex: Female
  Weight: 98 kg

DRUGS (5)
  1. POTASSIUM CHLORIDE [Concomitant]
     Indication: BLOOD POTASSIUM INCREASED
     Dates: start: 20120207
  2. ENALAPRIL MALEATE AND HYDROCHLOROTHIAZIDE [Concomitant]
     Indication: HYPERTONIA
  3. BENDAMUSTINE HYDROCHLORIDE [Suspect]
     Indication: B-CELL LYMPHOMA
     Dosage: LAST DOSE OF BENDAMUSTINE- 188.1 MG, LAST DOSE PRIOR TO SAE 24/MAR/2012
     Route: 042
     Dates: start: 20120216
  4. MABTHERA [Suspect]
     Indication: B-CELL LYMPHOMA
     Dosage: VOLUME OF LAST RITUXIMAB TAKEN 783.75 ML, CONCENTRATION- 375 MG/ML, LAST DOSE PRIOR TO SAE 23/MAR/20
     Route: 042
  5. FUROSEMIDE [Concomitant]
     Dates: start: 20120207

REACTIONS (1)
  - ANAEMIA HAEMOLYTIC AUTOIMMUNE [None]
